FAERS Safety Report 9251360 (Version 1)
Quarter: 2013Q1

REPORT INFORMATION
  Report Type: Spontaneous
  Country: US (occurrence: None)
  Receive Date: 20130305
  Receipt Date: 20130305
  Transmission Date: 20140127
  Serious: Yes (Disabling, Other)
  Sender: FDA-Public Use
  Company Number: 163-21880-12042210

PATIENT
  Age: 60 Year
  Sex: Female

DRUGS (5)
  1. REVLIMID [Suspect]
     Indication: PLASMA CELL MYELOMA
     Dosage: 25 MG, 1 IN 1 D, PO
     Route: 048
     Dates: start: 20120323, end: 20120327
  2. VELCADE [Concomitant]
  3. ARANESP (DARBEPOETIN ALFA) [Concomitant]
  4. ZOMETA (ZOLEDRONIC ACID) [Concomitant]
  5. DECADRON (DEXAMETHASONE) [Concomitant]

REACTIONS (1)
  - Rash pruritic [None]
